FAERS Safety Report 25412199 (Version 1)
Quarter: 2025Q2

REPORT INFORMATION
  Report Type: Spontaneous
  Country: US (occurrence: US)
  Receive Date: 20250609
  Receipt Date: 20250609
  Transmission Date: 20250716
  Serious: Yes (Hospitalization)
  Sender: AMGEN
  Company Number: US-AMGEN-USASP2025109561

PATIENT
  Age: 17 Year
  Sex: Male

DRUGS (23)
  1. PREDNISONE [Suspect]
     Active Substance: PREDNISONE
     Indication: Hyperthyroidism
     Route: 065
  2. PROPRANOLOL [Concomitant]
     Active Substance: PROPRANOLOL HYDROCHLORIDE
     Indication: Hypertrophic cardiomyopathy
  3. VERAPAMIL [Concomitant]
     Active Substance: VERAPAMIL HYDROCHLORIDE
     Indication: Hypertrophic cardiomyopathy
  4. AMIODARONE [Concomitant]
     Active Substance: AMIODARONE
     Dosage: 200 MILLIGRAM, QD
     Route: 048
  5. AMIODARONE [Concomitant]
     Active Substance: AMIODARONE
  6. AMIODARONE [Concomitant]
     Active Substance: AMIODARONE
  7. AMIODARONE [Concomitant]
     Active Substance: AMIODARONE
  8. AMIODARONE [Concomitant]
     Active Substance: AMIODARONE
     Dosage: 200 MILLIGRAM, BID
     Route: 048
  9. AMIODARONE [Concomitant]
     Active Substance: AMIODARONE
  10. OMAVELOXOLONE [Concomitant]
     Active Substance: OMAVELOXOLONE
     Indication: Friedreich^s ataxia
  11. ADENOSINE [Concomitant]
     Active Substance: ADENOSINE
  12. METOPROLOL TARTRATE [Concomitant]
     Active Substance: METOPROLOL TARTRATE
     Dosage: 50 MICROGRAM, BID
  13. DOFETILIDE [Concomitant]
     Active Substance: DOFETILIDE
     Dosage: 500 MICROGRAM, BID
  14. DOFETILIDE [Concomitant]
     Active Substance: DOFETILIDE
     Dosage: 250 MICROGRAM, BID
  15. DOFETILIDE [Concomitant]
     Active Substance: DOFETILIDE
     Dosage: 250 MICROGRAM, Q8H
  16. METHIMAZOLE [Concomitant]
     Active Substance: METHIMAZOLE
  17. PROPYLTHIOURACIL [Concomitant]
     Active Substance: PROPYLTHIOURACIL
  18. EPINEPHRINE [Concomitant]
     Active Substance: EPINEPHRINE
  19. VASOPRESSIN [Concomitant]
     Active Substance: VASOPRESSIN
  20. NOREPINEPHRINE [Concomitant]
     Active Substance: NOREPINEPHRINE
  21. ESMOLOL [Concomitant]
     Active Substance: ESMOLOL HYDROCHLORIDE
  22. DILTIAZEM [Concomitant]
     Active Substance: DILTIAZEM
  23. DIGOXIN [Concomitant]
     Active Substance: DIGOXIN

REACTIONS (10)
  - Atrial flutter [Unknown]
  - Pneumonia klebsiella [Unknown]
  - Pneumonia aspiration [Unknown]
  - Friedreich^s ataxia [Unknown]
  - Respiratory failure [Unknown]
  - Myopathy [Unknown]
  - Arrhythmia induced cardiomyopathy [Unknown]
  - Atrioventricular block complete [Unknown]
  - Therapeutic product ineffective for unapproved indication [Unknown]
  - Off label use [Unknown]
